FAERS Safety Report 8207522-6 (Version None)
Quarter: 2012Q1

REPORT INFORMATION
  Report Type: 
  Country: None (occurrence: None)
  Receive Date: 20120314
  Receipt Date: 20120302
  Transmission Date: 20120608
  Serious: Yes (Other)
  Sender: FDA-Public Use
  Company Number: CN-BRISTOL-MYERS SQUIBB COMPANY-16404352

PATIENT
  Age: 3 Decade
  Sex: Male

DRUGS (1)
  1. BARACLUDE [Suspect]
     Route: 048
     Dates: start: 20111101

REACTIONS (3)
  - PREGNANCY [None]
  - ABORTION INDUCED [None]
  - EXPOSURE VIA FATHER [None]
